FAERS Safety Report 16824659 (Version 2)
Quarter: 2020Q3

REPORT INFORMATION
  Report Type: Spontaneous
  Country: US (occurrence: US)
  Receive Date: 20190918
  Receipt Date: 20200902
  Transmission Date: 20201102
  Serious: No
  Sender: FDA-Public Use
  Company Number: US-ALVOGEN-2019-ALVOGEN-099758

PATIENT
  Age: 88 Year
  Sex: Female

DRUGS (3)
  1. ESTROGENS CONJUGATED/MEDROXYPROGESTERONE ACETATE [Concomitant]
     Active Substance: ESTROGENS, CONJUGATED\MEDROXYPROGESTERONE ACETATE
     Indication: PRODUCT USED FOR UNKNOWN INDICATION
  2. LEVOTHYROXINE SODIUM. [Concomitant]
     Active Substance: LEVOTHYROXINE SODIUM
     Indication: PRODUCT USED FOR UNKNOWN INDICATION
  3. CLINDAMYCIN. [Suspect]
     Active Substance: CLINDAMYCIN
     Indication: PRODUCT USED FOR UNKNOWN INDICATION
     Dosage: USED 2 PM AND 7 PM/12 AM AND 6 PM
     Dates: start: 20190413

REACTIONS (6)
  - Nasal discomfort [Unknown]
  - Oropharyngeal pain [Unknown]
  - Dizziness [Recovering/Resolving]
  - Vertigo [Unknown]
  - Illness [Unknown]
  - Cough [Unknown]

NARRATIVE: CASE EVENT DATE: 201904
